FAERS Safety Report 18914472 (Version 1)
Quarter: 2021Q1

REPORT INFORMATION
  Report Type: Spontaneous
  Country: DE (occurrence: DE)
  Receive Date: 20210219
  Receipt Date: 20210219
  Transmission Date: 20210420
  Serious: Yes (Death, Other)
  Sender: FDA-Public Use
  Company Number: DE-AMGEN-DEUSP2021025046

PATIENT
  Sex: Female

DRUGS (8)
  1. TALIMOGENE LAHERPAREPVEC [Suspect]
     Active Substance: TALIMOGENE LAHERPAREPVEC
     Indication: METASTASES TO LIVER
  2. PEMBROLIZUMAB. [Concomitant]
     Active Substance: PEMBROLIZUMAB
     Indication: GENITOURINARY MELANOMA
  3. IPILIMUMAB [Concomitant]
     Active Substance: IPILIMUMAB
     Indication: GENITOURINARY MELANOMA
     Route: 065
  4. NIVOLUMAB [Concomitant]
     Active Substance: NIVOLUMAB
     Indication: METASTASES TO LIVER
  5. PEMBROLIZUMAB. [Concomitant]
     Active Substance: PEMBROLIZUMAB
     Indication: METASTASES TO LIVER
  6. NIVOLUMAB [Concomitant]
     Active Substance: NIVOLUMAB
     Indication: GENITOURINARY MELANOMA
  7. TALIMOGENE LAHERPAREPVEC [Suspect]
     Active Substance: TALIMOGENE LAHERPAREPVEC
     Indication: GENITOURINARY MELANOMA
     Dosage: UNK, 5 TIMES EVERY OTHER WEEK
     Route: 036
  8. IPILIMUMAB [Concomitant]
     Active Substance: IPILIMUMAB
     Indication: METASTASES TO LIVER

REACTIONS (3)
  - Metastatic malignant melanoma [Unknown]
  - Death [Fatal]
  - Therapeutic product effect incomplete [Unknown]
